FAERS Safety Report 8327537-7 (Version None)
Quarter: 2012Q2

REPORT INFORMATION
  Report Type: 
  Country: None (occurrence: None)
  Receive Date: 20120430
  Receipt Date: 20120424
  Transmission Date: 20120825
  Serious: Yes (Hospitalization, Other)
  Sender: FDA-Public Use
  Company Number: 2009-193180-NL

PATIENT
  Age: 37 Year
  Sex: Female
  Weight: 94.8925 kg

DRUGS (5)
  1. NUVARING [Suspect]
     Indication: MENSTRUATION IRREGULAR
     Dosage: Q3W;VAG
     Route: 067
     Dates: start: 20060101, end: 20090115
  2. NUVARING [Suspect]
     Indication: MENORRHAGIA
     Dosage: Q3W;VAG
     Route: 067
     Dates: start: 20060101, end: 20090115
  3. NUVARING [Suspect]
     Indication: CONTRACEPTION
     Dosage: Q3W;VAG
     Route: 067
     Dates: start: 20060101, end: 20090115
  4. MULTI-VITAMINS [Concomitant]
  5. VITAMIN B-12 [Concomitant]

REACTIONS (29)
  - HYPERTENSION [None]
  - HEADACHE [None]
  - HAEMATOCHEZIA [None]
  - MITRAL VALVE INCOMPETENCE [None]
  - TRICUSPID VALVE INCOMPETENCE [None]
  - COUGH [None]
  - MULTIPLE INJURIES [None]
  - PULMONARY EMBOLISM [None]
  - INJECTION SITE PAIN [None]
  - PAIN IN EXTREMITY [None]
  - MUSCULOSKELETAL PAIN [None]
  - BODY TINEA [None]
  - PARAESTHESIA [None]
  - MUSCULOSKELETAL DISCOMFORT [None]
  - HYPERCHOLESTEROLAEMIA [None]
  - HEPATIC STEATOSIS [None]
  - MUSCLE SPASMS [None]
  - BLOOD GLUCOSE INCREASED [None]
  - LEFT VENTRICULAR HYPERTROPHY [None]
  - HYPOAESTHESIA [None]
  - PULMONARY INFARCTION [None]
  - OSTEOARTHRITIS [None]
  - OROPHARYNGEAL PAIN [None]
  - NASOPHARYNGITIS [None]
  - PALPITATIONS [None]
  - PRURITUS [None]
  - CARDIAC FLUTTER [None]
  - URINARY TRACT INFECTION [None]
  - OEDEMA PERIPHERAL [None]
